FAERS Safety Report 8198601-0 (Version None)
Quarter: 2012Q1

REPORT INFORMATION
  Report Type: 
  Country: None (occurrence: None)
  Receive Date: 20120309
  Receipt Date: 20120113
  Transmission Date: 20120608
  Serious: No
  Sender: FDA-Public Use
  Company Number: US-AMGEN-USASP2012002570

PATIENT
  Age: 82 Year
  Sex: Female

DRUGS (7)
  1. PROLIA [Suspect]
     Indication: OSTEOPOROSIS POSTMENOPAUSAL
     Dosage: 60 MG, Q6MO
     Dates: start: 20110716
  2. MULTI-VITAMINS [Concomitant]
     Dosage: 1 UNK, UNK
  3. GLUCOSAMINE SULFATE [Concomitant]
     Dosage: 1 UNK, UNK
  4. HYDROCHLOROTHIAZIDE [Concomitant]
     Dosage: 1 UNK, QD
  5. GLUCOSAMINE + MSM [Concomitant]
     Dosage: 1 UNK, QD
  6. XALATAN [Concomitant]
     Dosage: UNK UNK, QD
  7. COMBIGAN [Concomitant]
     Dosage: UNK UNK, QD

REACTIONS (2)
  - MOBILITY DECREASED [None]
  - GASTROOESOPHAGEAL REFLUX DISEASE [None]
